FAERS Safety Report 25182545 (Version 1)
Quarter: 2025Q2

REPORT INFORMATION
  Report Type: Spontaneous
  Country: US (occurrence: US)
  Receive Date: 20250410
  Receipt Date: 20250410
  Transmission Date: 20250716
  Serious: No
  Sender: OPTINOSE INC
  Company Number: US-OptiNose US, Inc-2024OPT000095

PATIENT
  Age: 50 Year
  Sex: Female

DRUGS (1)
  1. XHANCE [Suspect]
     Active Substance: FLUTICASONE PROPIONATE
     Indication: Product used for unknown indication
     Route: 045

REACTIONS (4)
  - Ear disorder [Recovering/Resolving]
  - Malaise [Recovering/Resolving]
  - Ear pain [Recovering/Resolving]
  - Intentional product misuse [Unknown]
